FAERS Safety Report 5535353-4 (Version None)
Quarter: 2007Q4

REPORT INFORMATION
  Report Type: 
  Country: None (occurrence: None)
  Receive Date: 20071206
  Receipt Date: 20071123
  Transmission Date: 20080405
  Serious: Yes (Other)
  Sender: FDA-Public Use
  Company Number: BR-PFIZER INC-2007099489

PATIENT
  Sex: Female
  Weight: 59 kg

DRUGS (2)
  1. FRONTAL XR [Suspect]
     Indication: EMOTIONAL DISORDER
     Route: 048
  2. RIVOTRIL [Concomitant]
     Route: 048

REACTIONS (5)
  - AGITATION [None]
  - BLOOD PRESSURE INCREASED [None]
  - DRUG DEPENDENCE [None]
  - INSOMNIA [None]
  - NERVOUSNESS [None]
